FAERS Safety Report 4378553-1 (Version None)
Quarter: 2004Q2

REPORT INFORMATION
  Report Type: 
  Country: None (occurrence: None)
  Receive Date: 20040616
  Receipt Date: 20040607
  Transmission Date: 20050107
  Serious: Yes (Hospitalization)
  Sender: FDA-Public Use
  Company Number: FR-GLAXOSMITHKLINE-B0335037A

PATIENT
  Age: 52 Year
  Sex: Female

DRUGS (2)
  1. CLAVENTIN [Suspect]
     Dosage: 15G PER DAY
     Route: 042
     Dates: start: 20040506, end: 20040521
  2. SEROPRAM [Suspect]
     Dosage: 1TAB PER DAY
     Route: 048
     Dates: start: 20040422, end: 20040430

REACTIONS (3)
  - BLEEDING TIME PROLONGED [None]
  - EPISTAXIS [None]
  - HAEMATURIA [None]
